FAERS Safety Report 5491222-X (Version None)
Quarter: 2007Q4

REPORT INFORMATION
  Report Type: 
  Country: None (occurrence: None)
  Receive Date: 20071019
  Receipt Date: 20071009
  Transmission Date: 20080405
  Serious: Yes (Hospitalization)
  Sender: FDA-Public Use
  Company Number: BE-ABBOTT-07P-013-0420152-00

PATIENT
  Sex: Male

DRUGS (6)
  1. NORVIR [Suspect]
     Indication: HIV INFECTION
  2. RITONAVIR [Concomitant]
     Indication: HIV INFECTION
     Dates: start: 20060923
  3. ATAZANAVIR SULFATE [Concomitant]
     Indication: HIV INFECTION
     Dates: start: 20060923
  4. LAMIVUDINE [Concomitant]
     Indication: HIV INFECTION
     Dates: start: 20060923, end: 20061125
  5. TENOFOVIR [Concomitant]
     Indication: HIV INFECTION
     Dates: start: 20060923, end: 20061125
  6. ABACAVIR SULFATE W/LAMIVUDINE [Concomitant]
     Indication: HIV INFECTION
     Dates: start: 20061126

REACTIONS (6)
  - LIPODYSTROPHY ACQUIRED [None]
  - PERINEAL PAIN [None]
  - PROSTATIC ADENOMA [None]
  - PROSTATITIS [None]
  - PSEUDOMONAS INFECTION [None]
  - URETHRITIS [None]
